FAERS Safety Report 13243552 (Version 2)
Quarter: 2017Q1

REPORT INFORMATION
  Report Type: Spontaneous
  Country: PT (occurrence: PT)
  Receive Date: 20170216
  Receipt Date: 20170228
  Transmission Date: 20170428
  Serious: Yes (Death, Other)
  Sender: FDA-Public Use
  Company Number: PT-GILEAD-2017-0258038

PATIENT
  Age: 47 Year
  Sex: Male

DRUGS (19)
  1. LOPINAVIR W/RITONAVIR [Concomitant]
     Active Substance: LOPINAVIR\RITONAVIR
     Indication: HIV INFECTION
  2. FOLIC ACID. [Concomitant]
     Active Substance: FOLIC ACID
  3. BUDESONIDE. [Concomitant]
     Active Substance: BUDESONIDE
  4. FORMOTEROL [Concomitant]
     Active Substance: FORMOTEROL
  5. PREGABALIN. [Concomitant]
     Active Substance: PREGABALIN
  6. CYCLOPHOSPHAMIDE. [Concomitant]
     Active Substance: CYCLOPHOSPHAMIDE
  7. CYANOCOBALAMIN. [Concomitant]
     Active Substance: CYANOCOBALAMIN
  8. IPRATROPIUM [Concomitant]
     Active Substance: IPRATROPIUM
  9. PERINDOPRIL + AMLODIPINA SANDOZ [Concomitant]
  10. THIAMINE. [Concomitant]
     Active Substance: THIAMINE
  11. METHADONE [Concomitant]
     Active Substance: METHADONE HYDROCHLORIDE
     Indication: DRUG ABUSE
  12. ABACAVIR. [Concomitant]
     Active Substance: ABACAVIR
  13. DABIGATRAN [Concomitant]
     Active Substance: DABIGATRAN
  14. AMINOPHYLLINE. [Concomitant]
     Active Substance: AMINOPHYLLINE
  15. HARVONI [Suspect]
     Active Substance: LEDIPASVIR\SOFOSBUVIR
     Indication: CHRONIC HEPATITIS C
     Dosage: 1 DF, UNK
     Route: 065
     Dates: start: 201601, end: 201604
  16. SALBUTAMOL [Concomitant]
     Active Substance: ALBUTEROL
  17. ALENDRONIC ACID W/COLECALCIFEROL [Concomitant]
  18. TENOFOVIR DISOPROXIL FUMARATE. [Concomitant]
     Active Substance: TENOFOVIR DISOPROXIL FUMARATE
     Indication: HIV INFECTION
  19. PYRIDOXINE [Concomitant]
     Active Substance: PYRIDOXINE

REACTIONS (2)
  - Sepsis [Fatal]
  - Pruritus [Recovered/Resolved]

NARRATIVE: CASE EVENT DATE: 201701
